FAERS Safety Report 8312218-6 (Version None)
Quarter: 2012Q2

REPORT INFORMATION
  Report Type: 
  Country: None (occurrence: None)
  Receive Date: 20120425
  Receipt Date: 20120420
  Transmission Date: 20120825
  Serious: Yes (Other)
  Sender: FDA-Public Use
  Company Number: CHPA2012US006106

PATIENT
  Sex: Female

DRUGS (4)
  1. CHOLESTEROL- AND TRIGLYCERIDE REDUCERS [Concomitant]
     Indication: BLOOD CHOLESTEROL INCREASED
  2. PREVACID 24 HR [Suspect]
     Indication: REGURGITATION
     Dosage: 30 MG, QD
     Route: 048
  3. VITAMIN B NOS [Concomitant]
  4. VITAMINS NOS [Concomitant]

REACTIONS (9)
  - INAPPROPRIATE SCHEDULE OF DRUG ADMINISTRATION [None]
  - HEARING IMPAIRED [None]
  - ESCHERICHIA INFECTION [None]
  - CYSTITIS [None]
  - OVERDOSE [None]
  - CHEST PAIN [None]
  - INCORRECT DRUG ADMINISTRATION DURATION [None]
  - DISCOMFORT [None]
  - OFF LABEL USE [None]
